FAERS Safety Report 21989990 (Version 18)
Quarter: 2023Q4

REPORT INFORMATION
  Report Type: Spontaneous
  Country: US (occurrence: US)
  Receive Date: 20230214
  Receipt Date: 20231120
  Transmission Date: 20240110
  Serious: Yes (Hospitalization, Other)
  Sender: FDA-Public Use
  Company Number: US-PFIZER INC-PV202300008868

PATIENT
  Age: 65 Year
  Sex: Female

DRUGS (8)
  1. BOSULIF [Suspect]
     Active Substance: BOSUTINIB MONOHYDRATE
     Indication: Chronic myeloid leukaemia
     Dosage: 400 MG
  2. BOSULIF [Suspect]
     Active Substance: BOSUTINIB MONOHYDRATE
     Dosage: 100 MG, 2X/DAY
     Route: 048
     Dates: start: 20220707
  3. BOSULIF [Suspect]
     Active Substance: BOSUTINIB MONOHYDRATE
     Dosage: 300 MG, 1X/DAY
     Route: 048
     Dates: start: 20221213, end: 20230110
  4. BOSULIF [Suspect]
     Active Substance: BOSUTINIB MONOHYDRATE
     Dosage: 100 MG
     Dates: start: 20230209
  5. BOSULIF [Suspect]
     Active Substance: BOSUTINIB MONOHYDRATE
     Dosage: 100 MG, 1X/DAY
  6. BOSULIF [Suspect]
     Active Substance: BOSUTINIB MONOHYDRATE
     Dosage: 300 MG, DAILY
     Route: 048
  7. BOSULIF [Suspect]
     Active Substance: BOSUTINIB MONOHYDRATE
     Dosage: 200 MG, DAILY
     Route: 048
     Dates: start: 20231018
  8. BOSULIF [Suspect]
     Active Substance: BOSUTINIB MONOHYDRATE
     Dosage: 200 MG (2 TABLETS), DAILY
     Route: 048
     Dates: start: 20230908

REACTIONS (25)
  - Pneumonia [Unknown]
  - Weight decreased [Unknown]
  - Off label use [Unknown]
  - Product dispensing error [Unknown]
  - Intentional dose omission [Unknown]
  - Dyspnoea [Unknown]
  - Brain fog [Unknown]
  - Gait disturbance [Unknown]
  - Emotional disorder [Unknown]
  - Decreased appetite [Unknown]
  - Memory impairment [Unknown]
  - Feeling abnormal [Unknown]
  - Stress [Unknown]
  - Malaise [Unknown]
  - Back pain [Unknown]
  - Hypersomnia [Unknown]
  - Muscle strain [Unknown]
  - Cough [Unknown]
  - Pain [Unknown]
  - Illness [Unknown]
  - Immune system disorder [Unknown]
  - Fatigue [Unknown]
  - Abdominal pain [Unknown]
  - Mental disorder [Unknown]
  - Cytogenetic abnormality [Unknown]

NARRATIVE: CASE EVENT DATE: 20220707
